FAERS Safety Report 7538500-8 (Version None)
Quarter: 2011Q2

REPORT INFORMATION
  Report Type: 
  Country: None (occurrence: None)
  Receive Date: 20110609
  Receipt Date: 20110529
  Transmission Date: 20111010
  Serious: Yes (Other)
  Sender: FDA-Public Use
  Company Number: DE-MYLANLABS-2011S1010954

PATIENT
  Sex: Female
  Weight: 110 kg

DRUGS (6)
  1. ACETAMINOPHEN [Concomitant]
     Indication: SUBSTANCE ABUSE
     Dosage: 7.5 [G/WK ]/ SOMETIMES ONLY 5G/WEEK
     Route: 048
     Dates: end: 20101209
  2. ENALAPRIL MALEATE [Suspect]
     Indication: HYPERTENSION
     Dosage: 5 [MG/D ]/ UNTIL ABORTION
     Route: 048
  3. TRAMADOL HCL [Suspect]
     Dosage: 1200 [MG/D ]/ UNTIL ABORTION
     Route: 048
     Dates: end: 20101209
  4. AMLODIPINE [Suspect]
     Indication: HYPERTENSION
     Dosage: 10 [MG/D ]/ UNTIL ABORTION
     Route: 048
  5. CODEINE SUL TAB [Concomitant]
     Indication: SUBSTANCE ABUSE
     Dosage: 4.5 [G/WK ]/ SOMETIMES ONLY 3G/WEEK
     Route: 048
     Dates: end: 20101209
  6. CITALOPRAM HYDROBROMIDE [Suspect]
     Indication: DEPRESSION
     Dosage: 20 [MG/D ]/ UNTIL ABORTION
     Route: 048
     Dates: end: 20101209

REACTIONS (2)
  - DRUG EXPOSURE DURING PREGNANCY [None]
  - ABORTION SPONTANEOUS [None]
